FAERS Safety Report 17169225 (Version 4)
Quarter: 2020Q1

REPORT INFORMATION
  Report Type: Spontaneous
  Country: US (occurrence: US)
  Receive Date: 20191218
  Receipt Date: 20200204
  Transmission Date: 20200409
  Serious: Yes (Other)
  Sender: FDA-Public Use
  Company Number: US-RECKITT BENCKISER HEALTHCARE INT LIMITED-RB-93434-2019

PATIENT
  Age: 74 Year
  Sex: Female

DRUGS (1)
  1. MUCINEX SINUS-MAX PRESSURE AND PAIN [Suspect]
     Active Substance: ACETAMINOPHEN\GUAIFENESIN\PHENYLEPHRINE HYDROCHLORIDE
     Indication: SINUS HEADACHE
     Dosage: 1 DOSAGE FORM TWICE ONE AT NOON OR 1 PM AND SIX HOURS LATER ANOTHER DOSE BETWEEN 6-7 PM
     Route: 065
     Dates: start: 20191108, end: 20191108

REACTIONS (3)
  - Urinary tract infection [Unknown]
  - Blood pressure increased [Recovered/Resolved]
  - Contraindicated product administered [Unknown]

NARRATIVE: CASE EVENT DATE: 20191108
